FAERS Safety Report 9072549 (Version 1)
Quarter: 2013Q1

REPORT INFORMATION
  Report Type: Report from Study
  Country: US (occurrence: US)
  Receive Date: 20130129
  Receipt Date: 20130129
  Transmission Date: 20140127
  Serious: No
  Sender: FDA-Public Use
  Company Number: US-ABBOTT-12P-163-0942698-00

PATIENT
  Sex: Female
  Weight: 50.85 kg

DRUGS (8)
  1. HUMIRA 40 MG/0.8 ML PEN [Suspect]
     Indication: CROHN^S DISEASE
     Dates: start: 201204
  2. AMBIEN [Concomitant]
     Indication: SLEEP DISORDER THERAPY
  3. CALCIUM [Concomitant]
     Indication: SUPPLEMENTATION THERAPY
  4. MIRALAX [Concomitant]
     Indication: CROHN^S DISEASE
  5. MULTIPLE VITAMINS [Concomitant]
     Indication: SUPPLEMENTATION THERAPY
  6. IRON [Concomitant]
     Indication: SUPPLEMENTATION THERAPY
  7. TYLENOL [Concomitant]
     Indication: PAIN
  8. PROAIRE [Concomitant]
     Indication: RESPIRATORY DISORDER

REACTIONS (2)
  - Wrong technique in drug usage process [Recovered/Resolved]
  - Incorrect route of drug administration [Recovered/Resolved]
